FAERS Safety Report 23472224 (Version 1)
Quarter: 2024Q1

REPORT INFORMATION
  Report Type: Spontaneous
  Country: US (occurrence: None)
  Receive Date: 20240202
  Receipt Date: 20240202
  Transmission Date: 20240410
  Serious: Yes (Hospitalization)
  Sender: FDA-Public Use
  Company Number: None

PATIENT
  Age: 60 Year
  Sex: Female
  Weight: 96.75 kg

DRUGS (1)
  1. MOUNJARO [Suspect]
     Active Substance: TIRZEPATIDE
     Indication: Type 2 diabetes mellitus
     Dosage: FREQUENCY : WEEKLY;?
     Route: 058

REACTIONS (7)
  - Palpitations [None]
  - Nausea [None]
  - Abdominal pain [None]
  - Diarrhoea [None]
  - Ventricular extrasystoles [None]
  - Extrasystoles [None]
  - Ejection fraction decreased [None]

NARRATIVE: CASE EVENT DATE: 20240128
